FAERS Safety Report 9249417 (Version 3)
Quarter: 2014Q1

REPORT INFORMATION
  Report Type: Spontaneous
  Country: CA (occurrence: CA)
  Receive Date: 20130423
  Receipt Date: 20140115
  Transmission Date: 20141002
  Serious: Yes (Hospitalization, Other)
  Sender: FDA-Public Use
  Company Number: CA-009507513-1304CAN013906

PATIENT
  Age: 45 Year
  Sex: Female
  Weight: 66 kg

DRUGS (5)
  1. EMEND IV [Suspect]
     Dosage: 150 MG, Q3W
     Route: 042
     Dates: start: 20130321, end: 20130321
  2. EMEND IV [Suspect]
     Dosage: 150 MG, Q3W
     Route: 042
     Dates: start: 20130416, end: 20130416
  3. METOCLOPRAMIDE [Concomitant]
     Dosage: 10 MG, QID
     Route: 048
  4. RANITIDINE [Concomitant]
     Dosage: 150 MG, BID
     Route: 048
  5. CISPLATIN [Concomitant]
     Indication: SQUAMOUS CELL CARCINOMA
     Dosage: UNK
     Dates: start: 20130416

REACTIONS (7)
  - Choking sensation [Unknown]
  - Erythema [Unknown]
  - Nausea [Unknown]
  - Vomiting [Unknown]
  - Dyspnoea [Unknown]
  - Swollen tongue [Recovering/Resolving]
  - Throat tightness [Recovering/Resolving]
